FAERS Safety Report 5022760-1 (Version None)
Quarter: 2006Q2

REPORT INFORMATION
  Report Type: 
  Country: None (occurrence: None)
  Receive Date: 20060609
  Receipt Date: 20060602
  Transmission Date: 20061013
  Serious: Yes (Other)
  Sender: FDA-Public Use
  Company Number: CA-BOEHRINGER INGELHEIM PHARMACEUTICALS, INC.-2006-DE-02906GD

PATIENT
  Sex: Female

DRUGS (10)
  1. CLONIDINE [Suspect]
     Indication: RENOVASCULAR HYPERTENSION
  2. HYDROCHLOROTHIAZIDE [Suspect]
     Indication: RENOVASCULAR HYPERTENSION
  3. METOPROLOL [Suspect]
     Indication: RENOVASCULAR HYPERTENSION
  4. METOPROLOL [Suspect]
  5. AMLODIPINE [Suspect]
     Indication: RENOVASCULAR HYPERTENSION
  6. SPIRONOLACTONE [Suspect]
     Indication: RENOVASCULAR HYPERTENSION
  7. ENALAPRIL [Suspect]
     Indication: RENOVASCULAR HYPERTENSION
  8. MINOXIDIL [Suspect]
     Indication: RENOVASCULAR HYPERTENSION
  9. PRAZOSIN HCL [Suspect]
     Indication: RENOVASCULAR HYPERTENSION
  10. LASIX [Suspect]
     Indication: RENOVASCULAR HYPERTENSION

REACTIONS (8)
  - ARTERIAL RESTENOSIS [None]
  - DRUG INEFFECTIVE [None]
  - FIBROMUSCULAR DYSPLASIA [None]
  - HYPERTRICHOSIS [None]
  - PROTEINURIA [None]
  - RENAL FAILURE ACUTE [None]
  - VASCULAR PSEUDOANEURYSM [None]
  - VENTRICULAR HYPERTROPHY [None]
